FAERS Safety Report 4761528-8 (Version None)
Quarter: 2005Q3

REPORT INFORMATION
  Report Type: 
  Country: None (occurrence: None)
  Receive Date: 20050906
  Receipt Date: 20050607
  Transmission Date: 20060218
  Serious: Yes (Hospitalization)
  Sender: FDA-Public Use
  Company Number: 2005AP03227

PATIENT
  Age: 69 Year
  Sex: Male

DRUGS (1)
  1. ATACAND [Suspect]
     Indication: HYPERTENSION
     Route: 048
     Dates: start: 20040827, end: 20050610

REACTIONS (3)
  - BACK PAIN [None]
  - CARDIAC ARREST [None]
  - FATIGUE [None]
